FAERS Safety Report 14140749 (Version 1)
Quarter: 2017Q4

REPORT INFORMATION
  Report Type: Spontaneous
  Country: US (occurrence: US)
  Receive Date: 20171030
  Receipt Date: 20171030
  Transmission Date: 20180321
  Serious: No
  Sender: FDA-Public Use
  Company Number: US-PFIZER INC-2017463646

PATIENT
  Age: 64 Year
  Sex: Male

DRUGS (2)
  1. EUCRISA [Suspect]
     Active Substance: CRISABOROLE
     Indication: SKIN FISSURES
  2. EUCRISA [Suspect]
     Active Substance: CRISABOROLE
     Indication: PSORIASIS
     Dosage: UNK (THIN LAYER APPLIED TO HAND ONE TIME)
     Route: 061

REACTIONS (3)
  - Application site swelling [Unknown]
  - Application site pain [Unknown]
  - Product use in unapproved indication [Unknown]
